FAERS Safety Report 23746237 (Version 1)
Quarter: 2024Q2

REPORT INFORMATION
  Report Type: Spontaneous
  Country: FR (occurrence: FR)
  Receive Date: 20240416
  Receipt Date: 20240416
  Transmission Date: 20240716
  Serious: Yes (Hospitalization)
  Sender: FDA-Public Use
  Company Number: FR-AFSSAPS-AVMP2024000018

PATIENT
  Age: 37 Year
  Sex: Female

DRUGS (7)
  1. ZOLPIDEM [Suspect]
     Active Substance: ZOLPIDEM TARTRATE
     Indication: Product used for unknown indication
     Dosage: 10 MILLIGRAM, DAILY, AND IMV WHILE RECOVERING FROM COCAINE
     Route: 065
     Dates: start: 2019
  2. LYRICA [Suspect]
     Active Substance: PREGABALIN
     Indication: Product used for unknown indication
     Dosage: 4.2 GRAM, 14 TABLETS
     Route: 065
     Dates: start: 20231128, end: 20231128
  3. LYRICA [Suspect]
     Active Substance: PREGABALIN
     Dosage: 600 MILLIGRAM, DAILY
     Route: 065
     Dates: start: 2019
  4. BROMAZEPAM [Suspect]
     Active Substance: BROMAZEPAM
     Indication: Product used for unknown indication
     Dosage: 6 MILLIGRAM, DAILY,AND IMV COMING DOWN FROM COCAINE
     Route: 065
     Dates: start: 2019
  5. OPIUM [Suspect]
     Active Substance: MORPHINE\OPIUM
     Indication: Product used for unknown indication
     Dosage: 3 RAILS PER WEEK CURRENTLY
     Route: 045
     Dates: start: 2020
  6. METHADONE [Suspect]
     Active Substance: METHADONE HYDROCHLORIDE
     Indication: Product used for unknown indication
     Dosage: UNK
     Route: 065
     Dates: start: 20231128, end: 20231128
  7. COCAINE [Concomitant]
     Active Substance: COCAINE
     Indication: Product used for unknown indication
     Dosage: 2 GRAM, DAILY
     Route: 040
     Dates: start: 2002

REACTIONS (4)
  - Drug use disorder [Not Recovered/Not Resolved]
  - Substance use disorder [Not Recovered/Not Resolved]
  - Pneumonia aspiration [Recovering/Resolving]
  - Coma [Recovered/Resolved]

NARRATIVE: CASE EVENT DATE: 20231128
